FAERS Safety Report 9772277 (Version 1)
Quarter: 2013Q4

REPORT INFORMATION
  Report Type: Spontaneous
  Country: AT (occurrence: AT)
  Receive Date: 20131219
  Receipt Date: 20131219
  Transmission Date: 20140711
  Serious: Yes (Other)
  Sender: FDA-Public Use
  Company Number: AT-ASTELLAS-2013EU011163

PATIENT
  Age: 87 Year
  Sex: Male

DRUGS (2)
  1. XTANDI [Suspect]
     Indication: PROPHYLAXIS
     Dosage: UNK
     Route: 065
  2. CALCIUM + VITAMIN D [Concomitant]
     Indication: HYPOCALCAEMIA
     Dosage: UNK DF, UNKNOWN/D
     Route: 065

REACTIONS (2)
  - Off label use [Unknown]
  - Hypocalcaemia [Unknown]
